FAERS Safety Report 6337565-9 (Version None)
Quarter: 2009Q3

REPORT INFORMATION
  Report Type: 
  Country: None (occurrence: None)
  Receive Date: 20090902
  Receipt Date: 20090819
  Transmission Date: 20100115
  Serious: Yes (Other)
  Sender: FDA-Public Use
  Company Number: CA-JNJFOC-20090802889

PATIENT
  Age: 40 Year
  Sex: Male
  Weight: 70.31 kg

DRUGS (1)
  1. EXTRA STRENGTH TYLENOL ALLERGY [Suspect]
     Indication: NASOPHARYNGITIS
     Route: 048

REACTIONS (2)
  - PROSTATOMEGALY [None]
  - URINARY RETENTION [None]
